FAERS Safety Report 20912566 (Version 2)
Quarter: 2022Q2

REPORT INFORMATION
  Report Type: Spontaneous
  Country: RO (occurrence: RO)
  Receive Date: 20220603
  Receipt Date: 20220608
  Transmission Date: 20220721
  Serious: Yes (Hospitalization, Other)
  Sender: FDA-Public Use
  Company Number: RO-Dr. FALK Pharma GmbH-SA-126-22

PATIENT
  Age: 39 Year
  Sex: Male

DRUGS (6)
  1. MESALAMINE [Suspect]
     Active Substance: MESALAMINE
     Indication: Proctitis ulcerative
     Dosage: UNK UNK, QD
     Route: 065
     Dates: start: 200912, end: 201412
  2. MESALAMINE [Suspect]
     Active Substance: MESALAMINE
     Indication: Colitis
     Dosage: UNK UNK, QD
     Route: 054
  3. MESALAMINE [Suspect]
     Active Substance: MESALAMINE
     Indication: Proctitis ulcerative
     Dosage: UNK UNK, QD
     Route: 048
     Dates: start: 200912, end: 201412
  4. MESALAMINE [Suspect]
     Active Substance: MESALAMINE
     Indication: Colitis
  5. HUMIRA [Suspect]
     Active Substance: ADALIMUMAB
     Indication: Proctitis ulcerative
     Dosage: UNK
     Route: 058
     Dates: start: 201412, end: 201503
  6. AZATHIOPRINE [Suspect]
     Active Substance: AZATHIOPRINE
     Indication: Product used for unknown indication
     Dosage: UNK
     Route: 065
     Dates: start: 201504, end: 201708

REACTIONS (13)
  - Ulcer [Unknown]
  - Erythema [Unknown]
  - Rectal lesion [Unknown]
  - Enterocolitis haemorrhagic [Unknown]
  - Clostridium difficile infection [Unknown]
  - Drug specific antibody present [Unknown]
  - Proctitis ulcerative [Unknown]
  - Oedema [Unknown]
  - Acute haemorrhagic ulcerative colitis [Unknown]
  - Condition aggravated [Unknown]
  - Therapeutic product effect decreased [Unknown]
  - Colitis ulcerative [Not Recovered/Not Resolved]
  - Drug ineffective [Unknown]

NARRATIVE: CASE EVENT DATE: 20141101
